FAERS Safety Report 9116478 (Version 1)
Quarter: 2013Q1

REPORT INFORMATION
  Report Type: Spontaneous
  Country: FR (occurrence: FR)
  Receive Date: 20130225
  Receipt Date: 20130225
  Transmission Date: 20140127
  Serious: Yes (Hospitalization)
  Sender: FDA-Public Use
  Company Number: FR-US-EMD SERONO, INC.-7194492

PATIENT
  Sex: Female

DRUGS (3)
  1. OVITRELLE [Suspect]
     Indication: IN VITRO FERTILISATION
     Route: 058
     Dates: start: 20111129, end: 20111129
  2. MENOPUR [Suspect]
     Indication: IN VITRO FERTILISATION
     Route: 058
     Dates: start: 20111121, end: 20111128
  3. ORGALUTRAN [Suspect]
     Indication: IN VITRO FERTILISATION
     Route: 058
     Dates: start: 20111126, end: 20111128

REACTIONS (3)
  - Ovarian hyperstimulation syndrome [Recovered/Resolved]
  - Dyspnoea [Recovered/Resolved]
  - Ascites [Recovered/Resolved]
